FAERS Safety Report 5667266-1 (Version None)
Quarter: 2008Q1

REPORT INFORMATION
  Report Type: 
  Country: None (occurrence: None)
  Receive Date: 20080315
  Receipt Date: 20080111
  Transmission Date: 20080703
  Serious: No
  Sender: FDA-Public Use
  Company Number: US-ABBOTT-08P-163-0433925-00

PATIENT
  Sex: Female
  Weight: 54.48 kg

DRUGS (6)
  1. HUMIRA [Suspect]
     Indication: CROHN'S DISEASE
     Dosage: STARTER DOSE
     Route: 058
     Dates: start: 20071001
  2. HUMIRA [Suspect]
     Route: 058
  3. HUMIRA [Suspect]
     Route: 058
     Dates: end: 20080101
  4. HUMIRA [Suspect]
     Route: 058
     Dates: start: 20080101
  5. PREDNISONE [Suspect]
     Indication: CROHN'S DISEASE
     Route: 048
  6. PREDNISONE [Suspect]
     Route: 048

REACTIONS (10)
  - ABDOMINAL PAIN [None]
  - ABNORMAL FAECES [None]
  - ANGER [None]
  - DEPRESSIVE SYMPTOM [None]
  - DIARRHOEA [None]
  - DRUG INEFFECTIVE [None]
  - FAECES DISCOLOURED [None]
  - FREQUENT BOWEL MOVEMENTS [None]
  - MANIA [None]
  - MUCOUS STOOLS [None]
